FAERS Safety Report 4390383-3 (Version None)
Quarter: 2004Q2

REPORT INFORMATION
  Report Type: 
  Country: None (occurrence: None)
  Receive Date: 20040630
  Receipt Date: 20040614
  Transmission Date: 20050107
  Serious: Yes (Other)
  Sender: FDA-Public Use
  Company Number: 188004

PATIENT
  Age: 47 Year
  Sex: Female
  Weight: 90.2658 kg

DRUGS (7)
  1. AVONEX [Suspect]
     Indication: MULTIPLE SCLEROSIS
     Dosage: 30 MCG QW; IM
     Route: 030
     Dates: start: 20030320
  2. PREVACID [Concomitant]
  3. TYLENOL [Concomitant]
  4. MECLIZINE [Concomitant]
  5. NORTRIPTYLINE HCL [Concomitant]
  6. CARTIA [Concomitant]
  7. SLEEP AID [Concomitant]

REACTIONS (5)
  - EXERCISE TOLERANCE DECREASED [None]
  - HEPATIC STEATOSIS [None]
  - SMOOTH MUSCLE ANTIBODY POSITIVE [None]
  - TREATMENT NONCOMPLIANCE [None]
  - WEIGHT INCREASED [None]
